FAERS Safety Report 7060493-0 (Version None)
Quarter: 2010Q4

REPORT INFORMATION
  Report Type: 
  Country: None (occurrence: None)
  Receive Date: 20101025
  Receipt Date: 20101013
  Transmission Date: 20110411
  Serious: Yes (Hospitalization, Other)
  Sender: FDA-Public Use
  Company Number: BR-PFIZER INC-2010129848

PATIENT
  Age: 80 Year
  Sex: Male

DRUGS (1)
  1. LYRICA [Suspect]
     Indication: PEMPHIGUS
     Dosage: 150 MG, 1X/DAY
     Route: 048
     Dates: start: 20081013

REACTIONS (4)
  - DIZZINESS [None]
  - PROSTATE CANCER [None]
  - SOMNOLENCE [None]
  - TONGUE DISORDER [None]
